FAERS Safety Report 6304618-0 (Version None)
Quarter: 2009Q3

REPORT INFORMATION
  Report Type: 
  Country: None (occurrence: None)
  Receive Date: 20090811
  Receipt Date: 20090804
  Transmission Date: 20100115
  Serious: Yes (Hospitalization)
  Sender: FDA-Public Use
  Company Number: US-JNJFOC-20090801746

PATIENT
  Sex: Female
  Weight: 47.63 kg

DRUGS (3)
  1. DURAGESIC-100 [Suspect]
     Indication: BACK PAIN
     Route: 062
  2. FENTANYL TRANSDERMAL SYSTEM [Suspect]
     Indication: BACK PAIN
     Route: 062
  3. PROZAC [Concomitant]
     Indication: DEPRESSION
     Route: 048

REACTIONS (13)
  - ABDOMINAL PAIN [None]
  - DISTURBANCE IN ATTENTION [None]
  - HAEMATOCHEZIA [None]
  - MUSCLE SPASMS [None]
  - NECK INJURY [None]
  - PAIN [None]
  - PAIN IN JAW [None]
  - PHYSICAL ASSAULT [None]
  - PRODUCT QUALITY ISSUE [None]
  - SEDATION [None]
  - SLEEP DISORDER [None]
  - SMALL INTESTINE CARCINOMA [None]
  - WRONG TECHNIQUE IN DRUG USAGE PROCESS [None]
